FAERS Safety Report 5527173-1 (Version None)
Quarter: 2007Q4

REPORT INFORMATION
  Report Type: 
  Country: None (occurrence: None)
  Receive Date: 20071121
  Receipt Date: 20071112
  Transmission Date: 20080405
  Serious: Yes (Other)
  Sender: FDA-Public Use
  Company Number: 07US000955

PATIENT
  Age: 29 Year
  Sex: Female
  Weight: 81.6 kg

DRUGS (6)
  1. LITHIUM CARBONATE [Suspect]
     Indication: AFFECTIVE DISORDER
     Dosage: 900 MG, BEDTIME, ORAL; 300 MG, BEDTIME
     Route: 048
     Dates: start: 20050101
  2. ZOLOFT [Concomitant]
  3. PROZAC [Concomitant]
  4. LAMICTAL (LAMOTRIGINIE) [Concomitant]
  5. ABILIFY [Concomitant]
  6. TRAZODONE HCL [Concomitant]

REACTIONS (11)
  - CONVULSION [None]
  - DENTAL CARIES [None]
  - DEPRESSION [None]
  - SELF ESTEEM DECREASED [None]
  - SENSITIVITY OF TEETH [None]
  - STEVENS-JOHNSON SYNDROME [None]
  - TEETH BRITTLE [None]
  - TOOTH DECALCIFICATION [None]
  - TOOTH EROSION [None]
  - TOOTHACHE [None]
  - WEIGHT INCREASED [None]
